FAERS Safety Report 17745045 (Version 2)
Quarter: 2020Q2

REPORT INFORMATION
  Report Type: Spontaneous
  Country: HN (occurrence: HN)
  Receive Date: 20200504
  Receipt Date: 20200507
  Transmission Date: 20200714
  Serious: Yes (Other)
  Sender: FDA-Public Use
  Company Number: HN-US-PROVELL PHARMACEUTICALS LLC-9158968

PATIENT
  Age: 51 Year
  Sex: Female

DRUGS (1)
  1. EUTHYROX [Suspect]
     Active Substance: LEVOTHYROXINE SODIUM
     Indication: HYPOTHYROIDISM

REACTIONS (9)
  - Choking sensation [Unknown]
  - Insomnia [Unknown]
  - Nervous system disorder [Unknown]
  - Suffocation feeling [Unknown]
  - Asthenia [Unknown]
  - Muscular weakness [Unknown]
  - Stress [Unknown]
  - Dizziness [Unknown]
  - Syncope [Unknown]

NARRATIVE: CASE EVENT DATE: 20200423
